FAERS Safety Report 4800044-1 (Version None)
Quarter: 2005Q4

REPORT INFORMATION
  Report Type: 
  Country: None (occurrence: None)
  Receive Date: 20051017
  Receipt Date: 20051003
  Transmission Date: 20060501
  Serious: Yes (Hospitalization)
  Sender: FDA-Public Use
  Company Number: US-JNJFOC-20050604191

PATIENT
  Sex: Female

DRUGS (7)
  1. REMICADE [Suspect]
     Route: 042
  2. REMICADE [Suspect]
     Route: 042
  3. REMICADE [Suspect]
     Indication: RHEUMATOID ARTHRITIS
     Route: 042
  4. ACTONEL [Concomitant]
  5. CALCIUM GLUCONATE [Concomitant]
  6. VITAMIN D [Concomitant]
  7. ATENOLOL [Concomitant]

REACTIONS (18)
  - ANAEMIA [None]
  - ANXIETY [None]
  - BRONCHOPNEUMONIA [None]
  - CHOLELITHIASIS [None]
  - CHRONIC OBSTRUCTIVE PULMONARY DISEASE [None]
  - CORNEAL DYSTROPHY [None]
  - DEPRESSION [None]
  - FIBROMYALGIA [None]
  - GAIT DISTURBANCE [None]
  - GALLBLADDER DISORDER [None]
  - HYPERSENSITIVITY [None]
  - HYPERTENSION [None]
  - MALAISE [None]
  - ONYCHOMYCOSIS [None]
  - RENAL FAILURE [None]
  - RHEUMATOID ARTHRITIS [None]
  - TACHYCARDIA [None]
  - VENTRICULAR HYPOKINESIA [None]
